FAERS Safety Report 18313042 (Version 3)
Quarter: 2021Q3

REPORT INFORMATION
  Report Type: Spontaneous
  Country: US (occurrence: US)
  Receive Date: 20200925
  Receipt Date: 20210707
  Transmission Date: 20211014
  Serious: No
  Sender: FDA-Public Use
  Company Number: US-PFIZER INC-2020009746

PATIENT
  Age: 1 Year
  Sex: Male
  Weight: 11.97 kg

DRUGS (3)
  1. RAPAMUNE [Suspect]
     Active Substance: SIROLIMUS
     Indication: LYMPHATIC DISORDER
     Dosage: 0.2 ML, 2X/DAY [60 ML 1 MG/ML]
     Route: 048
  2. RAPAMUNE [Suspect]
     Active Substance: SIROLIMUS
     Dosage: 0.6 ML(60 ML, 1 MG/ML, GIVE 0.6 ML)
     Route: 048
     Dates: start: 2020
  3. RAPAMUNE [Suspect]
     Active Substance: SIROLIMUS
     Dosage: 0.6 ML, 2X/DAY (60 ML 1MG/ML, TAKE 0.6ML TWICE DAILY)

REACTIONS (3)
  - Off label use [Unknown]
  - Nasopharyngitis [Not Recovered/Not Resolved]
  - Ear infection [Recovering/Resolving]

NARRATIVE: CASE EVENT DATE: 2020
